FAERS Safety Report 16904259 (Version 1)
Quarter: 2019Q4

REPORT INFORMATION
  Report Type: Spontaneous
  Country: US (occurrence: US)
  Receive Date: 20190819
  Receipt Date: 20190819
  Transmission Date: 20200122
  Serious: No
  Sender: FDA-Public Use
  Company Number: None

PATIENT
  Age: 60 Year
  Sex: Male

DRUGS (1)
  1. REPATHA [Suspect]
     Active Substance: EVOLOCUMAB
     Indication: PRODUCT USED FOR UNKNOWN INDICATION
     Dosage: 140MG EVERY 14  DAYS SQ
     Route: 058
     Dates: start: 201907, end: 201907

REACTIONS (2)
  - Throat tightness [None]
  - Swelling [None]

NARRATIVE: CASE EVENT DATE: 20190715
